FAERS Safety Report 8585457 (Version 4)
Quarter: 2012Q4

REPORT INFORMATION
  Report Type: 
  Country: JP (occurrence: JP)
  Receive Date: 20120530
  Receipt Date: 20120830
  Transmission Date: 20130627
  Serious: Yes (Other)
  Sender: FDA-Public Use
  Company Number: JP-PFIZER INC-2012128205

PATIENT
  Age: 51 Year
  Sex: Male

DRUGS (1)
  1. CELECOX [Suspect]
     Indication: LIGAMENT SPRAIN
     Dosage: 100 mg, 2x/day
     Route: 048
     Dates: start: 20120523, end: 20120527

REACTIONS (2)
  - Urine output decreased [Recovering/Resolving]
  - Generalised oedema [Recovering/Resolving]
